FAERS Safety Report 9073463 (Version 1)
Quarter: 2013Q1

REPORT INFORMATION
  Report Type: Report from Study
  Country: US (occurrence: US)
  Receive Date: 20130129
  Receipt Date: 20130129
  Transmission Date: 20140127
  Serious: No
  Sender: FDA-Public Use
  Company Number: US-ABBOTT-12P-163-0939229-00

PATIENT
  Age: 54 Year
  Sex: Female

DRUGS (8)
  1. HUMIRA 40 MG/0.8 ML PEN [Suspect]
     Indication: PSORIASIS
     Dates: start: 20120215
  2. VYTORIN [Concomitant]
     Indication: BLOOD CHOLESTEROL INCREASED
     Dosage: 10/80 - 1 TAB AT BEDTIME
  3. TRILIPIX DR [Concomitant]
     Indication: BLOOD CHOLESTEROL INCREASED
     Dosage: 135MG AT BEDTIME
  4. METFORMIN HCL ER [Concomitant]
     Indication: TYPE 2 DIABETES MELLITUS
  5. JANUVIA [Concomitant]
     Indication: TYPE 2 DIABETES MELLITUS
  6. BABY ASA [Concomitant]
     Indication: CARDIOVASCULAR EVENT PROPHYLAXIS
     Dosage: 81MG DAILY
  7. CLOBETASOL PROPIONATE [Concomitant]
     Indication: PSORIASIS
  8. EPINASTINE HCL [Concomitant]
     Indication: SEASONAL ALLERGY
     Dosage: 1 DROP TO EACH EYE DAILY

REACTIONS (1)
  - Psoriasis [Not Recovered/Not Resolved]
